FAERS Safety Report 4492339-9 (Version None)
Quarter: 2004Q3

REPORT INFORMATION
  Report Type: 
  Country: None (occurrence: None)
  Receive Date: 20040921
  Receipt Date: 20040317
  Transmission Date: 20050211
  Serious: Yes (Other)
  Sender: FDA-Public Use
  Company Number: 163-20785-04030488(0)

PATIENT
  Age: 66 Year
  Sex: Male

DRUGS (5)
  1. THALOMID [Suspect]
     Indication: MULTIPLE MYELOMA
     Dosage: 400 MG, DAILY, ORAL
     Route: 048
     Dates: start: 20030917, end: 20031126
  2. DEXAMETHASONE [Suspect]
     Indication: MULTIPLE MYELOMA
     Dosage: 40 MG, DAILY, ORAL
     Route: 048
     Dates: start: 20040110, end: 20040113
  3. CYCLOPHOSPHAMIDE [Suspect]
     Indication: MULTIPLE MYELOMA
     Dosage: 728 MG, DAILY, INTRAVENOUS
     Route: 042
     Dates: start: 20040110, end: 20040113
  4. ETOPOSIDE [Suspect]
     Indication: MULTIPLE MYELOMA
     Dosage: 73 MG, DAILY, INTRAVENOUS
     Route: 042
     Dates: start: 20040110, end: 20040113
  5. CISPLATIN [Suspect]
     Indication: MULTIPLE MYELOMA
     Dosage: 27 MG, DAILY, INTRAVENOUS
     Route: 042
     Dates: start: 20040110, end: 20040113

REACTIONS (1)
  - DEEP VEIN THROMBOSIS [None]
